FAERS Safety Report 9542891 (Version 1)
Quarter: 2013Q3

REPORT INFORMATION
  Report Type: Spontaneous
  Country: US (occurrence: US)
  Receive Date: 20130923
  Receipt Date: 20130923
  Transmission Date: 20140515
  Serious: Yes (Hospitalization)
  Sender: FDA-Public Use
  Company Number: US-BAYER-2013-114455

PATIENT
  Age: 22 Year
  Sex: Female

DRUGS (7)
  1. OCELLA [Suspect]
  2. YASMIN [Suspect]
  3. ZARAH [Suspect]
  4. CELEXA [Concomitant]
  5. ARIPIPRAZOLE [Concomitant]
     Dosage: 20 MG, DAILY
     Route: 048
  6. CITALOPRAM [Concomitant]
     Dosage: 20 MG, DAILY
     Route: 048
  7. ABILIFY [Concomitant]

REACTIONS (1)
  - Deep vein thrombosis [None]
